FAERS Safety Report 8024891-0 (Version None)
Quarter: 2012Q1

REPORT INFORMATION
  Report Type: 
  Country: None (occurrence: None)
  Receive Date: 20120105
  Receipt Date: 20111229
  Transmission Date: 20120608
  Serious: Yes (Hospitalization)
  Sender: FDA-Public Use
  Company Number: PHHY2011FR109684

PATIENT
  Sex: Male

DRUGS (7)
  1. NOZINAN [Concomitant]
  2. FORADIL [Suspect]
     Dates: start: 20100901
  3. DILTIAZEM HCL [Suspect]
     Dosage: 90 MG, QD
     Dates: start: 20100901, end: 20101001
  4. PENTOXIFYLLINE [Suspect]
     Dosage: 1.25 DF, QD
     Dates: start: 20100901, end: 20101018
  5. TRANXENE [Concomitant]
     Dosage: 10 MG, QD
  6. MICARDIS [Concomitant]
     Dosage: 40 MG, QD
  7. LANSOPRAZOLE [Concomitant]
     Dosage: 1 DF, QD

REACTIONS (10)
  - TOXIC SKIN ERUPTION [None]
  - RENAL FAILURE [None]
  - SEPSIS [None]
  - PYREXIA [None]
  - TACHYCARDIA [None]
  - SKIN EXFOLIATION [None]
  - HYPOTENSION [None]
  - RASH MACULO-PAPULAR [None]
  - URTICARIA [None]
  - PNEUMONIA [None]
